FAERS Safety Report 4655803-5 (Version None)
Quarter: 2005Q2

REPORT INFORMATION
  Report Type: 
  Country: None (occurrence: None)
  Receive Date: 20050509
  Receipt Date: 20050420
  Transmission Date: 20051028
  Serious: Yes (Hospitalization)
  Sender: FDA-Public Use
  Company Number: JP-SP-2005-00784

PATIENT
  Age: 79 Year
  Sex: Male

DRUGS (7)
  1. IMMUCYST [Suspect]
     Indication: BLADDER CANCER
     Route: 043
     Dates: start: 20050331
  2. IMMUCYST [Suspect]
     Route: 043
     Dates: start: 20050331
  3. BICALUTAMIDE [Concomitant]
     Indication: PROSTATE CANCER
     Dosage: 80 MG/DAY
     Route: 048
     Dates: start: 20040129
  4. NAFTOPIDIL [Concomitant]
     Dosage: 25MG/DAY
     Route: 048
     Dates: start: 20041101
  5. TEPRENONE [Concomitant]
     Dosage: 150MG/DAY
     Route: 048
     Dates: start: 20021001
  6. ENALAPRIL MALEATE [Concomitant]
     Indication: HYPERTENSION
     Dosage: 5MG/DAY
     Route: 048
     Dates: start: 19990701
  7. ZOPICLONE [Concomitant]
     Indication: INSOMNIA
     Dosage: 10 MG/DAY
     Route: 048
     Dates: start: 20040701

REACTIONS (5)
  - PLEURAL EFFUSION [None]
  - PYELONEPHRITIS [None]
  - PYREXIA [None]
  - RENAL FAILURE ACUTE [None]
  - TUBERCULOSIS [None]
